FAERS Safety Report 16045412 (Version 1)
Quarter: 2019Q1

REPORT INFORMATION
  Report Type: Report from Study
  Country: IT (occurrence: IT)
  Receive Date: 20190307
  Receipt Date: 20190307
  Transmission Date: 20190418
  Serious: Yes (Other)
  Sender: FDA-Public Use
  Company Number: IT-BRISTOL-MYERS SQUIBB COMPANY-BMS-2019-022170

PATIENT
  Age: 46 Year
  Sex: Female
  Weight: 82 kg

DRUGS (1)
  1. NIVOLUMAB [Suspect]
     Active Substance: NIVOLUMAB
     Indication: MALIGNANT MELANOMA
     Dosage: 246 MG, 1 CYCLICAL
     Route: 042
     Dates: start: 20190128

REACTIONS (1)
  - Iron deficiency anaemia [Unknown]

NARRATIVE: CASE EVENT DATE: 20190128
